FAERS Safety Report 7093676-4 (Version None)
Quarter: 2010Q4

REPORT INFORMATION
  Report Type: 
  Country: None (occurrence: None)
  Receive Date: 20101110
  Receipt Date: 20101102
  Transmission Date: 20110411
  Serious: Yes (Other)
  Sender: FDA-Public Use
  Company Number: US-US-EMD SERONO, INC.-7025995

PATIENT
  Sex: Female

DRUGS (4)
  1. REBIF [Suspect]
     Indication: MULTIPLE SCLEROSIS
     Dates: start: 20071101
  2. ARMOR [Concomitant]
     Indication: HYPOTHYROIDISM
     Dates: start: 20070101
  3. TOPAMAX [Concomitant]
     Indication: HEADACHE
     Dates: start: 20070101
  4. FLUOXETINE [Concomitant]
     Indication: DEPRESSION
     Dates: start: 20070101

REACTIONS (2)
  - OPTIC NEURITIS [None]
  - OSTEOPENIA [None]
